FAERS Safety Report 4775674-6 (Version None)
Quarter: 2005Q3

REPORT INFORMATION
  Report Type: 
  Country: None (occurrence: None)
  Receive Date: 20050922
  Receipt Date: 20050603
  Transmission Date: 20060218
  Serious: Yes (Hospitalization, Other)
  Sender: FDA-Public Use
  Company Number: PHNU2005DE02165

PATIENT
  Sex: Male

DRUGS (4)
  1. TRILEPTAL [Suspect]
     Indication: EPILEPSY
     Dosage: 750 MG, TID
     Route: 065
  2. NEURONTIN [Suspect]
     Dosage: 800 MG/DAY
     Route: 065
  3. MARCUMAR [Concomitant]
  4. ANTIHYPERTENSIVE DRUGS [Concomitant]

REACTIONS (3)
  - ALCOHOLIC LIVER DISEASE [None]
  - DRUG LEVEL INCREASED [None]
  - GAMMA-GLUTAMYLTRANSFERASE INCREASED [None]
